FAERS Safety Report 15934192 (Version 3)
Quarter: 2019Q1

REPORT INFORMATION
  Report Type: Report from Study
  Country: US (occurrence: US)
  Receive Date: 20190207
  Receipt Date: 20190305
  Transmission Date: 20190417
  Serious: Yes (Other)
  Sender: FDA-Public Use
  Company Number: US-LUNDBECK-DKLU2059978

PATIENT
  Age: 12 Month
  Sex: Male
  Weight: 8 kg

DRUGS (2)
  1. SABRIL [Suspect]
     Active Substance: VIGABATRIN
     Indication: SEIZURE
  2. SABRIL [Suspect]
     Active Substance: VIGABATRIN
     Indication: TUBEROUS SCLEROSIS COMPLEX
     Route: 065
     Dates: start: 20181026

REACTIONS (3)
  - Influenza [Unknown]
  - Conjunctivitis [Unknown]
  - Ear infection [Unknown]

NARRATIVE: CASE EVENT DATE: 20190128
